FAERS Safety Report 13404423 (Version 1)
Quarter: 2017Q2

REPORT INFORMATION
  Report Type: Spontaneous
  Country: US (occurrence: US)
  Receive Date: 20170405
  Receipt Date: 20170405
  Transmission Date: 20170830
  Serious: Yes (Hospitalization)
  Sender: FDA-Public Use
  Company Number: None

PATIENT
  Age: 53 Year
  Sex: Male

DRUGS (10)
  1. ASPIRIN. [Concomitant]
     Active Substance: ASPIRIN
  2. ERGOCALCIFEROL. [Concomitant]
     Active Substance: ERGOCALCIFEROL
  3. SILDENAFIL. [Suspect]
     Active Substance: SILDENAFIL
     Indication: CHRONIC KIDNEY DISEASE
     Route: 048
  4. TYLENOL EXTRASTRENGHT [Concomitant]
  5. RENVELA [Concomitant]
     Active Substance: SEVELAMER CARBONATE
  6. GABAPENTIN. [Concomitant]
     Active Substance: GABAPENTIN
  7. CLARITIN [Concomitant]
     Active Substance: LORATADINE
  8. FORENOL [Concomitant]
  9. VERAMYST [Concomitant]
     Active Substance: FLUTICASONE FUROATE
  10. TAMSULOSIN HCL [Concomitant]
     Active Substance: TAMSULOSIN

REACTIONS (2)
  - Cardiac operation [None]
  - Drug dose omission [None]
